FAERS Safety Report 16607982 (Version 1)
Quarter: 2019Q3

REPORT INFORMATION
  Report Type: Spontaneous
  Country: CA (occurrence: CA)
  Receive Date: 20190722
  Receipt Date: 20190722
  Transmission Date: 20191004
  Serious: Yes (Other)
  Sender: FDA-Public Use
  Company Number: CA-REGENERON PHARMACEUTICALS, INC.-2019-43540

PATIENT

DRUGS (9)
  1. ZYMAR [Suspect]
     Active Substance: GATIFLOXACIN
     Indication: PRODUCT USED FOR UNKNOWN INDICATION
     Route: 047
  2. CLOFIBRATE [Concomitant]
     Active Substance: CLOFIBRATE
     Indication: PRODUCT USED FOR UNKNOWN INDICATION
  3. FLUORESCEIN [Concomitant]
     Active Substance: FLUORESCEIN
     Indication: PRODUCT USED FOR UNKNOWN INDICATION
  4. POVIDONE [Suspect]
     Active Substance: POVIDONE
     Indication: PRODUCT USED FOR UNKNOWN INDICATION
  5. PHENYLEPHRINE HYDROCHLORIDE. [Concomitant]
     Active Substance: PHENYLEPHRINE HYDROCHLORIDE
     Indication: PRODUCT USED FOR UNKNOWN INDICATION
  6. AFLIBERCEPT IAI [Suspect]
     Active Substance: AFLIBERCEPT
     Indication: MACULAR DEGENERATION
     Dosage: UNK
     Route: 031
  7. LIDOCAINE. [Concomitant]
     Active Substance: LIDOCAINE
     Indication: PRODUCT USED FOR UNKNOWN INDICATION
     Route: 061
  8. TETRACAINE. [Concomitant]
     Active Substance: TETRACAINE
     Indication: PRODUCT USED FOR UNKNOWN INDICATION
  9. MYDRIACYL [Suspect]
     Active Substance: TROPICAMIDE
     Indication: PRODUCT USED FOR UNKNOWN INDICATION
     Dosage: LIQUID
     Route: 047

REACTIONS (6)
  - Dermatitis contact [Recovered/Resolved]
  - Rosacea [Recovered/Resolved]
  - Pruritus [Recovered/Resolved]
  - Headache [Recovered/Resolved]
  - Swelling face [Recovered/Resolved]
  - Vasodilatation [Recovered/Resolved]
